FAERS Safety Report 8048748-4 (Version None)
Quarter: 2012Q1

REPORT INFORMATION
  Report Type: 
  Country: None (occurrence: None)
  Receive Date: 20120111
  Receipt Date: 20111231
  Transmission Date: 20120608
  Serious: Yes (Hospitalization)
  Sender: FDA-Public Use
  Company Number: VISP-NO-1201L-0002

PATIENT
  Age: 76 Year
  Sex: Female

DRUGS (6)
  1. VISIPAQUE [Suspect]
     Indication: PRODUCT USED FOR UNKNOWN INDICATION
     Dosage: 300 ML, SINGLE DOSE ONCE
  2. ATROPINE [Concomitant]
  3. ACETYLSALICYLIC ACID (ASPIRIN) (ACETYLSALICYLIC ACID) [Concomitant]
  4. HEPARIN [Concomitant]
  5. CLOPIDOGREL [Concomitant]
  6. STATINS UNSPECIFIED [Concomitant]

REACTIONS (1)
  - TOXIC ENCEPHALOPATHY [None]
